FAERS Safety Report 11953611 (Version 1)
Quarter: 2016Q1

REPORT INFORMATION
  Report Type: Spontaneous
  Country: US (occurrence: US)
  Receive Date: 20160126
  Receipt Date: 20160126
  Transmission Date: 20160526
  Serious: No
  Sender: FDA-Public Use
  Company Number: US-BAUSCH-BL-2015-013168

PATIENT
  Sex: Female

DRUGS (1)
  1. EQUATE EYE ITCH RELIEF [Suspect]
     Active Substance: KETOTIFEN FUMARATE
     Indication: HYPERSENSITIVITY
     Dates: start: 20150418, end: 20150425

REACTIONS (1)
  - Drug ineffective [Unknown]

NARRATIVE: CASE EVENT DATE: 20150504
